FAERS Safety Report 25046041 (Version 2)
Quarter: 2025Q1

REPORT INFORMATION
  Report Type: Spontaneous
  Country: US (occurrence: US)
  Receive Date: 20250306
  Receipt Date: 20250318
  Transmission Date: 20250409
  Serious: Yes (Other)
  Sender: RADIUS PHARM
  Company Number: US-RADIUS HEALTH INC.-2025US001765

PATIENT
  Sex: Female

DRUGS (1)
  1. TYMLOS [Suspect]
     Active Substance: ABALOPARATIDE
     Indication: Senile osteoporosis
     Route: 058

REACTIONS (8)
  - Multiple sclerosis [Unknown]
  - Sensory disturbance [Unknown]
  - Somnolence [Unknown]
  - Unevaluable event [Unknown]
  - Intentional dose omission [Unknown]
  - Fatigue [Unknown]
  - Needle issue [Unknown]
  - Drug ineffective [Unknown]
